FAERS Safety Report 4612218-3 (Version None)
Quarter: 2005Q1

REPORT INFORMATION
  Report Type: 
  Country: None (occurrence: None)
  Receive Date: 20050308
  Receipt Date: 20041122
  Transmission Date: 20050727
  Serious: Yes (Other)
  Sender: FDA-Public Use
  Company Number: 2004UW23993

PATIENT
  Age: 70 Year
  Sex: Female
  Weight: 63.502 kg

DRUGS (4)
  1. CRESTOR [Suspect]
     Indication: BLOOD CHOLESTEROL INCREASED
     Dosage: 10 MG
     Dates: start: 20041112
  2. TOPROL-XL [Concomitant]
  3. CATAPRES [Concomitant]
  4. BELLAMINE S [Concomitant]

REACTIONS (4)
  - ARTHRALGIA [None]
  - ASTHENIA [None]
  - FALL [None]
  - MYALGIA [None]
